FAERS Safety Report 8169989-1 (Version None)
Quarter: 2012Q1

REPORT INFORMATION
  Report Type: 
  Country: None (occurrence: None)
  Receive Date: 20120228
  Receipt Date: 20120214
  Transmission Date: 20120608
  Serious: Yes (Disabling, Other)
  Sender: FDA-Public Use
  Company Number: US-ELI_LILLY_AND_COMPANY-US201202004667

PATIENT
  Sex: Male

DRUGS (5)
  1. NOVOLOG [Concomitant]
     Dosage: UNK
  2. HUMULIN N [Suspect]
     Indication: DIABETES MELLITUS
     Dosage: UNK, QD
     Route: 065
     Dates: start: 20060101
  3. HUMULIN N [Suspect]
     Dosage: UNK, QD
     Route: 065
     Dates: start: 20060101
  4. SYMLIN [Concomitant]
     Dosage: UNK
  5. LANTUS [Concomitant]
     Dosage: UNK

REACTIONS (8)
  - EYE DISORDER [None]
  - UNDERDOSE [None]
  - MOBILITY DECREASED [None]
  - BLISTER [None]
  - CORONARY ARTERIAL STENT INSERTION [None]
  - RENAL DISORDER [None]
  - DIABETIC NEUROPATHY [None]
  - DIABETES MELLITUS [None]
